FAERS Safety Report 5165017-0 (Version None)
Quarter: 2006Q4

REPORT INFORMATION
  Report Type: 
  Country: None (occurrence: None)
  Receive Date: 20061124
  Receipt Date: 20061114
  Transmission Date: 20070319
  Serious: Yes (Hospitalization)
  Sender: FDA-Public Use
  Company Number: 2006130145

PATIENT
  Age: 45 Year
  Sex: Male
  Weight: 76 kg

DRUGS (2)
  1. SUTENT [Suspect]
     Indication: GASTROINTESTINAL STROMAL TUMOUR
     Dosage: 50 MG (50 MG, 1 IN 1 D) ORAL
     Route: 048
     Dates: start: 20060620
  2. CODEINE [Concomitant]

REACTIONS (4)
  - BACTEROIDES INFECTION [None]
  - GENERALISED OEDEMA [None]
  - LIVER ABSCESS [None]
  - NEUTROPHIL PERCENTAGE INCREASED [None]
